FAERS Safety Report 10028637 (Version 1)
Quarter: 2014Q1

REPORT INFORMATION
  Report Type: Spontaneous
  Country: IT (occurrence: IT)
  Receive Date: 20140321
  Receipt Date: 20140321
  Transmission Date: 20141002
  Serious: Yes (Other)
  Sender: FDA-Public Use
  Company Number: PHHY2014IT032297

PATIENT
  Age: 22 Year
  Sex: Male

DRUGS (1)
  1. RISPERIDONE [Suspect]
     Dosage: 2 MG, PER DAY

REACTIONS (4)
  - Autism [Unknown]
  - Condition aggravated [Unknown]
  - Self injurious behaviour [Unknown]
  - Impulsive behaviour [Unknown]
